FAERS Safety Report 5930335-2 (Version None)
Quarter: 2008Q4

REPORT INFORMATION
  Report Type: 
  Country: None (occurrence: None)
  Receive Date: 20081023
  Receipt Date: 20081010
  Transmission Date: 20090506
  Serious: Yes (Other)
  Sender: FDA-Public Use
  Company Number: 1000001409

PATIENT
  Age: 81 Year
  Sex: Female
  Weight: 57.1 kg

DRUGS (1)
  1. ESCITALOPRAM [Suspect]
     Indication: DEPRESSION
     Dosage: 10 MG (10 MG, 1 IN 1 D) ,ORAL
     Route: 048
     Dates: start: 20080903, end: 20080910

REACTIONS (4)
  - ANXIETY [None]
  - APRAXIA [None]
  - DELIRIUM [None]
  - DISORIENTATION [None]
